FAERS Safety Report 25896246 (Version 1)
Quarter: 2025Q4

REPORT INFORMATION
  Report Type: Spontaneous
  Country: US (occurrence: US)
  Receive Date: 20251008
  Receipt Date: 20251008
  Transmission Date: 20260117
  Serious: No
  Sender: VERTEX
  Company Number: US-VERTEX PHARMACEUTICALS-2025-016070

PATIENT

DRUGS (1)
  1. JOURNAVX [Suspect]
     Active Substance: SUZETRIGINE
     Indication: Product used for unknown indication
     Dosage: UNK
     Route: 048
     Dates: start: 2025

REACTIONS (1)
  - Heart rate increased [Not Recovered/Not Resolved]

NARRATIVE: CASE EVENT DATE: 20250101
